APPROVED DRUG PRODUCT: ARIPIPRAZOLE
Active Ingredient: ARIPIPRAZOLE
Strength: 5MG
Dosage Form/Route: TABLET;ORAL
Application: A206251 | Product #002 | TE Code: AB
Applicant: ACCORD HEALTHCARE INC
Approved: Dec 7, 2016 | RLD: No | RS: No | Type: RX